FAERS Safety Report 21108454 (Version 3)
Quarter: 2022Q4

REPORT INFORMATION
  Report Type: Other
  Country: DE (occurrence: None)
  Receive Date: 20220721
  Receipt Date: 20221230
  Transmission Date: 20230112
  Serious: No
  Sender: FDA-Public Use
  Company Number: DE-ROCHE-3143846

PATIENT
  Age: 57 Year
  Sex: Female

DRUGS (6)
  1. OCREVUS [Suspect]
     Active Substance: OCRELIZUMAB
     Indication: Relapsing-remitting multiple sclerosis
     Route: 042
     Dates: start: 20211227
  2. CANDESARTAN [Concomitant]
     Active Substance: CANDESARTAN
  3. DISTIGMINE BROMIDE [Concomitant]
     Active Substance: DISTIGMINE BROMIDE
  4. TIZANIDINE [Concomitant]
     Active Substance: TIZANIDINE
  5. VITAMIN D3 [Concomitant]
     Active Substance: CHOLECALCIFEROL
  6. COMIRNATY [Concomitant]
     Active Substance: TOZINAMERAN
     Dosage: SEPTEMBER 2021, DECEMBER 2021, APRIL 2022
     Dates: start: 202105

REACTIONS (4)
  - COVID-19 [Recovered/Resolved]
  - Asthenia [Recovered/Resolved]
  - Ageusia [Recovered/Resolved]
  - Parosmia [Recovered/Resolved]

NARRATIVE: CASE EVENT DATE: 20220701
